FAERS Safety Report 6294989-6 (Version None)
Quarter: 2009Q3

REPORT INFORMATION
  Report Type: 
  Country: None (occurrence: None)
  Receive Date: 20090803
  Receipt Date: 20090722
  Transmission Date: 20100115
  Serious: Yes (Death)
  Sender: FDA-Public Use
  Company Number: JP-MERCK-0907USA04897

PATIENT
  Age: 74 Year
  Sex: Male

DRUGS (1)
  1. PRIMAXIN [Suspect]
     Indication: AORTIC DISSECTION
     Route: 042

REACTIONS (5)
  - DISSEMINATED INTRAVASCULAR COAGULATION [None]
  - GASTROINTESTINAL PERFORATION [None]
  - MULTI-ORGAN FAILURE [None]
  - PNEUMONIA [None]
  - TOXIC EPIDERMAL NECROLYSIS [None]
